FAERS Safety Report 17068873 (Version 2)
Quarter: 2019Q4

REPORT INFORMATION
  Report Type: Spontaneous
  Country: JP (occurrence: JP)
  Receive Date: 20191124
  Receipt Date: 20191201
  Transmission Date: 20200122
  Serious: Yes (Other)
  Sender: FDA-Public Use
  Company Number: NVSC2019JP045093

PATIENT
  Age: 89 Year
  Sex: Male

DRUGS (1)
  1. RIVASTACH [Suspect]
     Active Substance: RIVASTIGMINE
     Indication: DEMENTIA ALZHEIMER^S TYPE
     Dosage: 18 MG
     Route: 062

REACTIONS (2)
  - Neoplasm malignant [Unknown]
  - Decreased appetite [Unknown]
